FAERS Safety Report 25848539 (Version 1)
Quarter: 2025Q3

REPORT INFORMATION
  Report Type: Spontaneous
  Country: US (occurrence: US)
  Receive Date: 20250925
  Receipt Date: 20250925
  Transmission Date: 20251020
  Serious: No
  Sender: XTTRIUM
  Company Number: US-Xttrium Laboratories, Inc-2185299

PATIENT
  Sex: Female

DRUGS (1)
  1. CHLORHEXIDINE GLUCONATE [Suspect]
     Active Substance: CHLORHEXIDINE GLUCONATE
     Indication: Dental operation

REACTIONS (2)
  - Abdominal discomfort [Recovered/Resolved]
  - Dizziness [Recovered/Resolved]
